FAERS Safety Report 5279070-7 (Version None)
Quarter: 2007Q1

REPORT INFORMATION
  Report Type: 
  Country: None (occurrence: None)
  Receive Date: 20070328
  Receipt Date: 20060801
  Transmission Date: 20070707
  Serious: No
  Sender: FDA-Public Use
  Company Number: US-AMGEN-US177270

PATIENT
  Sex: Female
  Weight: 65.4 kg

DRUGS (7)
  1. NEULASTA [Suspect]
     Indication: CHEMOTHERAPY
     Route: 058
     Dates: start: 20060413, end: 20060413
  2. ADRIAMYCIN PFS [Concomitant]
     Route: 065
  3. CYTOXAN [Concomitant]
     Route: 065
  4. TAXOTERE [Concomitant]
     Route: 065
  5. LEVAQUIN [Concomitant]
     Route: 065
  6. LEVOTHROID [Concomitant]
     Route: 065
  7. VITAMIN CAP [Concomitant]
     Route: 065

REACTIONS (7)
  - DYSPNOEA [None]
  - EYE SWELLING [None]
  - FATIGUE [None]
  - HYPERHIDROSIS [None]
  - MYALGIA [None]
  - PYREXIA [None]
  - RASH [None]
